FAERS Safety Report 8791354 (Version 1)
Quarter: 2012Q4

REPORT INFORMATION
  Report Type: Spontaneous
  Country: None (occurrence: None)
  Receive Date: 20120912
  Receipt Date: 20120912
  Transmission Date: 20130627
  Serious: Yes (Death)
  Sender: FDA-Public Use
  Company Number: EUS-2012-00724

PATIENT

DRUGS (1)
  1. ASPARAGINASE [Suspect]

REACTIONS (1)
  - Thrombosis [None]
